FAERS Safety Report 4970798-2 (Version None)
Quarter: 2006Q2

REPORT INFORMATION
  Report Type: 
  Country: None (occurrence: None)
  Receive Date: 20060411
  Receipt Date: 20060411
  Transmission Date: 20061013
  Serious: Yes (Hospitalization)
  Sender: FDA-Public Use
  Company Number: None

PATIENT
  Age: 63 Year
  Sex: Male
  Weight: 83.5 kg

DRUGS (1)
  1. ERBITUX [Suspect]
     Indication: METASTATIC NEOPLASM
     Dosage: 800MG,  800MG X1,  INTRAVEN
     Route: 042
     Dates: start: 20060112, end: 20060112

REACTIONS (4)
  - ANGIONEUROTIC OEDEMA [None]
  - HYPOTENSION [None]
  - RASH [None]
  - SYNCOPE [None]
